FAERS Safety Report 6763035-X (Version None)
Quarter: 2010Q2

REPORT INFORMATION
  Report Type: 
  Country: None (occurrence: None)
  Receive Date: 20100609
  Receipt Date: 20100430
  Transmission Date: 20101027
  Serious: Yes (Death, Other)
  Sender: FDA-Public Use
  Company Number: US-CEPHALON-2010000219

PATIENT
  Age: 46 Year
  Sex: Male

DRUGS (7)
  1. ACTIQ [Suspect]
     Route: 002
  2. LORTAB [Suspect]
  3. PERCOCET [Suspect]
  4. METHADOSE [Suspect]
  5. SOMA [Suspect]
  6. VALIUM [Suspect]
  7. MEPROBAMATE [Suspect]

REACTIONS (8)
  - ACCIDENTAL OVERDOSE [None]
  - ARTERIOSCLEROSIS [None]
  - BRAIN INJURY [None]
  - CARDIO-RESPIRATORY ARREST [None]
  - DEPENDENCE [None]
  - DEPRESSED LEVEL OF CONSCIOUSNESS [None]
  - DRUG ABUSE [None]
  - DRUG TOXICITY [None]
